FAERS Safety Report 17175237 (Version 1)
Quarter: 2019Q4

REPORT INFORMATION
  Report Type: Spontaneous
  Country: CA (occurrence: CA)
  Receive Date: 20191219
  Receipt Date: 20191219
  Transmission Date: 20200122
  Serious: Yes (Other)
  Sender: FDA-Public Use
  Company Number: CA-CELLTRION INC.-2019CA018389

PATIENT

DRUGS (12)
  1. CORTIFOAM [Suspect]
     Active Substance: HYDROCORTISONE ACETATE
     Indication: COLITIS ULCERATIVE
     Dosage: UNK
     Route: 065
  2. ASACOL [Suspect]
     Active Substance: MESALAMINE
     Indication: COLITIS ULCERATIVE
     Dosage: 4.8 G, 1X/DAY
     Route: 065
  3. HYDROCORTISONE. [Suspect]
     Active Substance: HYDROCORTISONE
     Indication: COLITIS ULCERATIVE
     Dosage: UNK, 1X/DAY
     Route: 048
  4. INFLIXIMAB PFIZER (UNKNOWN) [Suspect]
     Active Substance: INFLIXIMAB
     Indication: COLITIS ULCERATIVE
     Dosage: UNK
     Route: 042
  5. PREDNISONE. [Suspect]
     Active Substance: PREDNISONE
     Indication: COLITIS ULCERATIVE
     Dosage: 50 MG, UNK
     Route: 065
  6. WARFARIN [Suspect]
     Active Substance: WARFARIN
     Indication: DEEP VEIN THROMBOSIS
     Dosage: UNK
     Route: 065
  7. HUMIRA [Concomitant]
     Active Substance: ADALIMUMAB
     Indication: CROHN^S DISEASE
     Dosage: UNK
  8. INFLIXIMAB PFIZER (UNKNOWN) [Suspect]
     Active Substance: INFLIXIMAB
     Indication: CROHN^S DISEASE
     Dosage: UNK
     Route: 065
  9. ENTYVIO [Suspect]
     Active Substance: VEDOLIZUMAB
     Indication: COLITIS ULCERATIVE
     Dosage: UNK
     Route: 065
  10. INFLIXIMAB [Concomitant]
     Active Substance: INFLIXIMAB
     Indication: CROHN^S DISEASE
     Dosage: UNK
  11. MEZAVANT [Suspect]
     Active Substance: MESALAMINE
     Indication: COLITIS ULCERATIVE
     Dosage: UNK
     Route: 065
  12. METHOTREXATE. [Concomitant]
     Active Substance: METHOTREXATE
     Dosage: UNK

REACTIONS (6)
  - Bronchiectasis [Unknown]
  - Condition aggravated [Unknown]
  - Drug ineffective [Unknown]
  - Frequent bowel movements [Unknown]
  - Weight decreased [Unknown]
  - Impaired quality of life [Unknown]
